FAERS Safety Report 4563688-0 (Version None)
Quarter: 2005Q1

REPORT INFORMATION
  Report Type: 
  Country: None (occurrence: None)
  Receive Date: 20050124
  Receipt Date: 20050110
  Transmission Date: 20050727
  Serious: Yes (Other)
  Sender: FDA-Public Use
  Company Number: 16128

PATIENT
  Age: 16 Year
  Sex: Female
  Weight: 50 kg

DRUGS (1)
  1. METHOTREXATE [Suspect]
     Indication: BONE SARCOMA
     Dosage: 146.6G IV
     Route: 042
     Dates: start: 20010807, end: 20020721

REACTIONS (5)
  - BETA 2 MICROGLOBULIN INCREASED [None]
  - CEREBROVASCULAR ACCIDENT [None]
  - DEAFNESS [None]
  - SINUS DISORDER [None]
  - THROMBOSIS [None]
